FAERS Safety Report 21816084 (Version 2)
Quarter: 2024Q1

REPORT INFORMATION
  Report Type: Spontaneous
  Country: CA (occurrence: CA)
  Receive Date: 20230104
  Receipt Date: 20240104
  Transmission Date: 20240410
  Serious: Yes (Other)
  Sender: FDA-Public Use
  Company Number: CA-AstraZeneca-2021A900435

PATIENT
  Sex: Female
  Weight: 54 kg

DRUGS (6)
  1. TRASTUZUMAB DERUXTECAN [Suspect]
     Active Substance: TRASTUZUMAB DERUXTECAN
     Indication: Breast cancer metastatic
     Dosage: 5.4 MG/KG, ONCE EVERY 3 WK
     Route: 042
  2. TRASTUZUMAB DERUXTECAN [Suspect]
     Active Substance: TRASTUZUMAB DERUXTECAN
     Dosage: 297 MG, ONCE EVERY 3 WK
     Route: 042
     Dates: start: 20211202
  3. TRASTUZUMAB DERUXTECAN [Suspect]
     Active Substance: TRASTUZUMAB DERUXTECAN
     Dosage: 237.6 MG, ONCE EVERY 12HR
     Route: 042
     Dates: start: 20211202
  4. TRASTUZUMAB DERUXTECAN [Suspect]
     Active Substance: TRASTUZUMAB DERUXTECAN
     Dosage: 4.4 MG/KG, ONCE EVERY 3 WK (237.6MG)
     Route: 042
  5. TRASTUZUMAB DERUXTECAN [Suspect]
     Active Substance: TRASTUZUMAB DERUXTECAN
     Dosage: 297 MG, 56 H
     Route: 042
     Dates: start: 20211223
  6. TRASTUZUMAB DERUXTECAN [Suspect]
     Active Substance: TRASTUZUMAB DERUXTECAN
     Dosage: 4.4 MG/KG
     Route: 042
     Dates: start: 20220118

REACTIONS (12)
  - Toxicity to various agents [Unknown]
  - Oropharyngeal pain [Unknown]
  - Muscle spasms [Unknown]
  - Drug hypersensitivity [Unknown]
  - Feeding disorder [Unknown]
  - Weight decreased [Unknown]
  - Malaise [Unknown]
  - Cough [Unknown]
  - Diarrhoea [Unknown]
  - Nausea [Unknown]
  - Headache [Unknown]
  - Fatigue [Unknown]
